FAERS Safety Report 24591438 (Version 1)
Quarter: 2024Q4

REPORT INFORMATION
  Report Type: Report from Study
  Country: ZA (occurrence: ZA)
  Receive Date: 20241108
  Receipt Date: 20241108
  Transmission Date: 20250114
  Serious: Yes (Hospitalization)
  Sender: NOVARTIS
  Company Number: ZA-002147023-NVSC2024ZA202522

PATIENT
  Age: 67 Year
  Sex: Male
  Weight: 82 kg

DRUGS (1)
  1. ZYKADIA [Suspect]
     Active Substance: CERITINIB
     Indication: Non-small cell lung cancer
     Dosage: 300 MG
     Route: 048
     Dates: start: 20200323, end: 20241024

REACTIONS (2)
  - Ascites [Not Recovered/Not Resolved]
  - Hepatic function abnormal [Unknown]

NARRATIVE: CASE EVENT DATE: 20241004
